FAERS Safety Report 20709718 (Version 1)
Quarter: 2022Q2

REPORT INFORMATION
  Report Type: Spontaneous
  Country: US (occurrence: None)
  Receive Date: 20220413
  Receipt Date: 20220413
  Transmission Date: 20220721
  Serious: Yes (Hospitalization)
  Sender: FDA-Public Use
  Company Number: None

PATIENT
  Age: 16 Year
  Sex: Male

DRUGS (16)
  1. EPIDIOLEX [Suspect]
     Active Substance: CANNABIDIOL
     Indication: Epilepsy
     Dosage: FREQUENCY : TWICE A DAY;?OTHER ROUTE : G-TUBE;?
     Route: 050
     Dates: start: 20220126
  2. ALBUTEROL SULFATE [Concomitant]
     Active Substance: ALBUTEROL SULFATE
     Dates: start: 20220412
  3. ALBUTEROL [Concomitant]
     Active Substance: ALBUTEROL
     Dates: start: 20220412
  4. QVAR REDIHALER [Concomitant]
     Active Substance: BECLOMETHASONE DIPROPIONATE
     Dates: start: 20220412
  5. PULMICORT TURBUHALER [Concomitant]
     Active Substance: BUDESONIDE
     Dates: start: 20210622
  6. ZYRTEC [Concomitant]
     Dates: start: 20211018
  7. ONFI [Concomitant]
     Active Substance: CLOBAZAM
     Dates: start: 20220126
  8. VALTOCO [Concomitant]
     Dates: start: 20220131
  9. ATROVENT 0.02% [Concomitant]
     Dates: start: 20210622
  10. VIMPAT [Concomitant]
     Dates: start: 20220410
  11. KEPRRA [Concomitant]
     Dates: start: 20220126
  12. CARNITOR SF [Concomitant]
     Active Substance: LEVOCARNITINE
     Dates: start: 20220209
  13. MONTELUKAST [Concomitant]
     Dates: start: 20220412
  14. NAPROXEN [Concomitant]
     Dates: start: 20220410
  15. OXCARBAZEPINE [Concomitant]
     Active Substance: OXCARBAZEPINE
     Dates: start: 20220126
  16. OXCARBAZEPINE [Concomitant]
     Active Substance: OXCARBAZEPINE
     Dates: start: 20220126

REACTIONS (1)
  - Seizure [None]

NARRATIVE: CASE EVENT DATE: 20220412
